FAERS Safety Report 4659368-3 (Version None)
Quarter: 2005Q2

REPORT INFORMATION
  Report Type: 
  Country: None (occurrence: None)
  Receive Date: 20050510
  Receipt Date: 20050502
  Transmission Date: 20051028
  Serious: Yes (Other)
  Sender: FDA-Public Use
  Company Number: 2005069969

PATIENT
  Age: 68 Year
  Sex: Male

DRUGS (2)
  1. NORVASC [Suspect]
     Indication: HYPERTENSION
     Dosage: 5 MG (5 MG, SINGLE INTERVAL: EVERYDAY), ORAL
     Route: 048
     Dates: start: 19980530
  2. FUROSEMIDE [Concomitant]

REACTIONS (2)
  - BLOOD PRESSURE INCREASED [None]
  - CREATININE RENAL CLEARANCE DECREASED [None]
